FAERS Safety Report 25821274 (Version 1)
Quarter: 2025Q3

REPORT INFORMATION
  Report Type: Spontaneous
  Country: RU (occurrence: RU)
  Receive Date: 20250919
  Receipt Date: 20250919
  Transmission Date: 20251021
  Serious: Yes (Death, Hospitalization, Other)
  Sender: BOEHRINGER INGELHEIM
  Company Number: RU-BoehringerIngelheim-2025-BI-096248

PATIENT
  Age: 55 Year
  Sex: Female

DRUGS (1)
  1. NINTEDANIB [Suspect]
     Active Substance: NINTEDANIB
     Indication: Idiopathic pulmonary fibrosis
     Dates: start: 202408, end: 202410

REACTIONS (2)
  - Idiopathic pulmonary fibrosis [Fatal]
  - Cardiac failure [Unknown]

NARRATIVE: CASE EVENT DATE: 20241023
